FAERS Safety Report 6841722-2 (Version None)
Quarter: 2010Q3

REPORT INFORMATION
  Report Type: 
  Country: None (occurrence: None)
  Receive Date: 20100714
  Receipt Date: 20070711
  Transmission Date: 20110219
  Serious: No
  Sender: FDA-Public Use
  Company Number: US-PFIZER INC-2007059154

PATIENT
  Sex: Female
  Weight: 78 kg

DRUGS (4)
  1. CHANTIX [Suspect]
     Indication: SMOKING CESSATION THERAPY
     Dates: start: 20070706
  2. CLARINEX [Concomitant]
  3. NAPROXEN [Concomitant]
     Indication: JOINT INJURY
  4. NAPROXEN [Concomitant]
     Indication: MIGRAINE

REACTIONS (1)
  - NAUSEA [None]
